FAERS Safety Report 5724617-7 (Version None)
Quarter: 2008Q2

REPORT INFORMATION
  Report Type: 
  Country: None (occurrence: None)
  Receive Date: 20080430
  Receipt Date: 20080430
  Transmission Date: 20081010
  Serious: No
  Sender: FDA-Public Use
  Company Number: None

PATIENT
  Sex: Female
  Weight: 49.5 kg

DRUGS (5)
  1. ISOVUE-300 [Suspect]
     Indication: COMPUTERISED TOMOGRAM
     Dosage: 130 ML IV
     Route: 042
     Dates: start: 20071029
  2. TRAZODONE HCL [Concomitant]
  3. CLONAZEPAM [Concomitant]
  4. INDIGESTION MEDICINE [Concomitant]
  5. LACTOSE INTOLERANCE MEDICATION [Concomitant]

REACTIONS (5)
  - BODY TEMPERATURE DECREASED [None]
  - CHILLS [None]
  - INFUSION RELATED REACTION [None]
  - PAIN IN EXTREMITY [None]
  - RESPIRATORY RATE INCREASED [None]
